APPROVED DRUG PRODUCT: LISDEXAMFETAMINE DIMESYLATE
Active Ingredient: LISDEXAMFETAMINE DIMESYLATE
Strength: 20MG
Dosage Form/Route: TABLET, CHEWABLE;ORAL
Application: A218850 | Product #002 | TE Code: AB
Applicant: SPECGX LLC
Approved: Dec 17, 2024 | RLD: No | RS: No | Type: RX